FAERS Safety Report 6765691-9 (Version None)
Quarter: 2010Q2

REPORT INFORMATION
  Report Type: 
  Country: None (occurrence: None)
  Receive Date: 20100611
  Receipt Date: 20100603
  Transmission Date: 20101027
  Serious: Yes (Other)
  Sender: FDA-Public Use
  Company Number: US-SANOFI-AVENTIS-2010SA024513

PATIENT
  Age: 40 Year
  Sex: Female
  Weight: 84 kg

DRUGS (19)
  1. LANTUS [Suspect]
     Indication: TYPE 2 DIABETES MELLITUS
     Dosage: DOSE:58 UNIT(S)
     Route: 058
     Dates: start: 20100301, end: 20100501
  2. LANTUS [Suspect]
     Dosage: HAS INCREASED DOSE PIRO TO AUG-2009 AND LAST MONTH INCREASED FROM 50-53
     Route: 058
     Dates: end: 20100301
  3. LANTUS [Suspect]
     Dosage: DOSE:55 UNIT(S)
     Route: 058
     Dates: start: 20100501
  4. OPTICLICK [Suspect]
     Indication: TYPE 2 DIABETES MELLITUS
  5. NOVOLOG [Concomitant]
     Dates: start: 20090801
  6. ANTIBIOTIC [Concomitant]
  7. DEPAKOTE [Concomitant]
     Route: 065
  8. METOPROLOL TARTRATE [Concomitant]
     Route: 065
  9. VALSARTAN [Concomitant]
     Route: 065
  10. LASIX [Concomitant]
     Route: 065
  11. SIMVASTATIN [Concomitant]
     Route: 065
  12. PLAVIX [Concomitant]
     Route: 065
  13. ASPIRIN [Concomitant]
     Route: 065
  14. PROGRAF [Concomitant]
     Dosage: TAKES 3 TWICE DAILY
  15. CELLCEPT [Concomitant]
     Route: 065
  16. PROCARDIA XL [Concomitant]
     Route: 065
  17. CELEXA [Concomitant]
     Route: 065
  18. NOVOLOG [Concomitant]
     Dosage: 8-12 UNITS BEFORE MEALS
     Route: 065
  19. MULTI-VITAMINS [Concomitant]
     Route: 065

REACTIONS (5)
  - BLOOD GLUCOSE DECREASED [None]
  - BLOOD GLUCOSE FLUCTUATION [None]
  - DRUG EXPOSURE DURING PREGNANCY [None]
  - NEPHROPATHY [None]
  - VIRAL INFECTION [None]
